FAERS Safety Report 5841834-6 (Version None)
Quarter: 2008Q3

REPORT INFORMATION
  Report Type: 
  Country: None (occurrence: None)
  Receive Date: 20080812
  Receipt Date: 20080805
  Transmission Date: 20090109
  Serious: Yes (Life-Threatening)
  Sender: FDA-Public Use
  Company Number: B0532005A

PATIENT
  Age: 62 Year
  Sex: Male

DRUGS (8)
  1. MELPHALAN [Suspect]
     Route: 042
     Dates: start: 20080714, end: 20080714
  2. HALOPERIDOL [Concomitant]
     Dosage: 3MG PER DAY
     Route: 048
     Dates: start: 20080714, end: 20080715
  3. CYCLIZINE [Concomitant]
     Dosage: 150MG PER DAY
     Route: 048
     Dates: start: 20080714, end: 20080715
  4. ONDANSETRON [Concomitant]
     Dosage: 16MG PER DAY
     Route: 048
     Dates: start: 20080714, end: 20080715
  5. CIPROFLOXACIN [Concomitant]
     Indication: PROPHYLAXIS
     Dosage: 1000MG PER DAY
     Route: 048
     Dates: start: 20080714, end: 20080715
  6. ACYCLOVIR [Concomitant]
     Indication: PROPHYLAXIS
     Dosage: 800MG PER DAY
     Route: 048
     Dates: start: 20080714, end: 20080715
  7. ITRACONAZOLE [Concomitant]
     Indication: PROPHYLAXIS
     Dosage: 400MG PER DAY
     Route: 048
     Dates: start: 20080714, end: 20080715
  8. CO-TRIMOXAZOLE [Concomitant]
     Indication: PROPHYLAXIS
     Dosage: 1920MG PER DAY
     Route: 048
     Dates: start: 20080714, end: 20080715

REACTIONS (1)
  - GRAND MAL CONVULSION [None]
